FAERS Safety Report 10389239 (Version 1)
Quarter: 2014Q3

REPORT INFORMATION
  Report Type: Spontaneous
  Country: DE (occurrence: DE)
  Receive Date: 20140818
  Receipt Date: 20140818
  Transmission Date: 20150326
  Serious: Yes (Other)
  Sender: FDA-Public Use
  Company Number: PHHY2014DE100583

PATIENT

DRUGS (10)
  1. PEGYLATED INTERFERON ALPHA NOS [Suspect]
     Active Substance: PEGINTERFERON ALFA-2A OR PEGINTERFERON ALFA-2B
     Dosage: 135 UG, UNK
  2. PEGYLATED INTERFERON ALPHA NOS [Suspect]
     Active Substance: PEGINTERFERON ALFA-2A OR PEGINTERFERON ALFA-2B
     Indication: FIBROSIS
     Dosage: 135 UG, UNK
  3. PEGYLATED INTERFERON ALPHA NOS [Suspect]
     Active Substance: PEGINTERFERON ALFA-2A OR PEGINTERFERON ALFA-2B
     Dosage: 180 UG, UNK
  4. COPEGUS [Suspect]
     Active Substance: RIBAVIRIN
     Indication: FIBROSIS
     Dosage: 1000 MG, UNK
  5. COPEGUS [Suspect]
     Active Substance: RIBAVIRIN
     Dosage: 1000 MG, UNK
  6. CICLOSPORIN [Suspect]
     Active Substance: CYCLOSPORINE
     Indication: IMMUNOSUPPRESSION
  7. PEGYLATED INTERFERON ALPHA NOS [Suspect]
     Active Substance: PEGINTERFERON ALFA-2A OR PEGINTERFERON ALFA-2B
     Dosage: 135 UG, UNK
  8. COPEGUS [Suspect]
     Active Substance: RIBAVIRIN
     Dosage: 600 MG, UNK
  9. INCIVO [Interacting]
     Active Substance: TELAPREVIR
     Indication: FIBROSIS
     Dosage: 1125 MG, BID
  10. COPEGUS [Suspect]
     Active Substance: RIBAVIRIN
     Dosage: 600 MG, UNK

REACTIONS (6)
  - Thrombocytopenia [Unknown]
  - Immunosuppressant drug level increased [Unknown]
  - Neutropenia [Unknown]
  - Rebound effect [Unknown]
  - Anaemia [Unknown]
  - Drug interaction [Unknown]
